FAERS Safety Report 4996501-8 (Version None)
Quarter: 2006Q2

REPORT INFORMATION
  Report Type: 
  Country: None (occurrence: None)
  Receive Date: 20060509
  Receipt Date: 20060501
  Transmission Date: 20061013
  Serious: Yes (Death, Hospitalization)
  Sender: FDA-Public Use
  Company Number: PHEH2006US05646

PATIENT
  Age: 75 Year
  Sex: Male

DRUGS (5)
  1. EXJADE [Suspect]
     Indication: BLOOD IRON INCREASED
     Dosage: 1500 MG, QD
     Route: 048
     Dates: start: 20060201, end: 20060401
  2. BUMEX [Concomitant]
     Dosage: 2 MG, BID
     Route: 048
  3. KLOR-CON [Concomitant]
     Dosage: 20 MEQ, BID
     Route: 048
  4. DARVOCET [Concomitant]
     Dosage: 20 MG, BID
     Route: 048
  5. OXYCONTIN [Concomitant]
     Dosage: UNK, BID
     Route: 048

REACTIONS (4)
  - DEATH [None]
  - HAEMATOCRIT DECREASED [None]
  - HAEMOGLOBIN DECREASED [None]
  - PLATELET COUNT DECREASED [None]
